FAERS Safety Report 6633097-9 (Version None)
Quarter: 2010Q1

REPORT INFORMATION
  Report Type: 
  Country: None (occurrence: None)
  Receive Date: 20100312
  Receipt Date: 20100301
  Transmission Date: 20100710
  Serious: Yes (Other)
  Sender: FDA-Public Use
  Company Number: PHEH2008US03865

PATIENT
  Sex: Male

DRUGS (21)
  1. AREDIA [Suspect]
     Dosage: 90 MG, Q 6 WEEKS
     Dates: start: 20020514
  2. MELPHALAN HYDROCHLORIDE [Concomitant]
     Dosage: UNK
     Dates: start: 20020301, end: 20030201
  3. PREDNISONE [Concomitant]
     Dosage: UNK
     Route: 048
     Dates: start: 20020301, end: 20030201
  4. ACIPHEX [Concomitant]
     Dosage: 20 MG, QD
     Route: 048
  5. PHOSLO [Concomitant]
     Dosage: UNK
  6. FLOMAX [Concomitant]
     Dosage: UNK
     Route: 048
  7. EPOGEN [Concomitant]
     Dosage: 40000 U, QW
     Dates: start: 20020403
  8. PROCARDIA [Concomitant]
     Dosage: 30 MG, QD
  9. VELCADE [Concomitant]
     Dosage: UNK
     Dates: start: 20020101
  10. COMPAZINE [Concomitant]
     Dosage: 10 MG, PRN
     Route: 048
  11. DEXAMETHASONE [Concomitant]
     Dosage: UNK
     Dates: start: 20020101, end: 20020301
  12. GLUCOSAMINE [Concomitant]
     Dosage: 500 MG, BID
     Route: 048
  13. VITAMIN B COMPLEX CAP [Concomitant]
     Dosage: 250 MCG, QD
     Route: 048
  14. VITAMIN D [Concomitant]
     Dosage: 400 U, QD
     Route: 048
  15. LICORICE [Concomitant]
     Dosage: 2 TABS, QD
     Route: 048
  16. PROCRIT                            /00909301/ [Concomitant]
     Dosage: 20000 U, PRN
     Route: 058
  17. NORVASC [Concomitant]
     Dosage: UNK
     Route: 048
  18. CEPHALEXIN [Concomitant]
     Dosage: UNK
     Route: 048
  19. HERBAL EXTRACTS NOS [Concomitant]
     Dosage: UNK
     Route: 048
  20. IRON [Concomitant]
     Dosage: 1, QD
     Route: 048
  21. VITAMIN A + D + CALCIUM [Concomitant]
     Dosage: 1, QD
     Route: 048

REACTIONS (23)
  - ABSCESS JAW [None]
  - ANAEMIA [None]
  - ANXIETY [None]
  - BASAL CELL CARCINOMA [None]
  - EMOTIONAL DISTRESS [None]
  - GINGIVAL INFECTION [None]
  - HIP FRACTURE [None]
  - HYPERKALAEMIA [None]
  - INFECTION [None]
  - INJURY [None]
  - ORAL DISORDER [None]
  - OSTEITIS [None]
  - OSTEOLYSIS [None]
  - OSTEONECROSIS [None]
  - PAIN [None]
  - PAIN IN JAW [None]
  - PHYSICAL DISABILITY [None]
  - PURULENT DISCHARGE [None]
  - SCAR [None]
  - SQUAMOUS CELL CARCINOMA [None]
  - TOOTH EXTRACTION [None]
  - TOOTHACHE [None]
  - UPPER LIMB FRACTURE [None]
